FAERS Safety Report 4717855-3 (Version None)
Quarter: 2005Q3

REPORT INFORMATION
  Report Type: 
  Country: None (occurrence: None)
  Receive Date: 20050720
  Receipt Date: 20050707
  Transmission Date: 20060218
  Serious: Yes (Hospitalization)
  Sender: FDA-Public Use
  Company Number: JP-JNJFOC-20050306978

PATIENT
  Sex: Female
  Weight: 55 kg

DRUGS (27)
  1. REMICADE [Suspect]
     Dosage: FIFTH INFUSION
     Route: 042
  2. REMICADE [Suspect]
     Dosage: THIS WAS THE FOURTH ADMINISTRATION
     Route: 042
  3. REMICADE [Suspect]
     Route: 042
  4. REMICADE [Suspect]
     Route: 042
  5. REMICADE [Suspect]
     Indication: RHEUMATOID ARTHRITIS
     Route: 042
  6. RHEUMATREX [Suspect]
     Indication: RHEUMATOID ARTHRITIS
     Dosage: PREVIOUSLY REPORTED AS STARTING 08-APR-1997
     Route: 048
  7. RIMATIL [Suspect]
     Indication: RHEUMATOID ARTHRITIS
     Route: 048
  8. PREDNISOLONE [Concomitant]
     Route: 048
  9. PREDNISOLONE [Concomitant]
     Indication: RHEUMATOID ARTHRITIS
     Route: 048
  10. CLINORIL [Concomitant]
     Indication: RHEUMATOID ARTHRITIS
     Route: 048
  11. SELTOUCH [Concomitant]
     Indication: RHEUMATOID ARTHRITIS
  12. MINOMYCIN [Concomitant]
     Route: 048
  13. LUVOX [Concomitant]
     Route: 048
  14. FOSAMAX [Concomitant]
     Route: 048
  15. MEDICON [Concomitant]
     Route: 048
  16. MUCOSLOVAN [Concomitant]
     Route: 048
  17. DASEN [Concomitant]
     Route: 048
  18. PL [Concomitant]
     Route: 048
  19. PYDOXAL [Concomitant]
     Route: 048
  20. MAGNESIUM OXIDE [Concomitant]
     Route: 048
  21. VOLTAREN [Concomitant]
     Route: 062
  22. CHONDRON [Concomitant]
     Route: 047
  23. ISCOTIN [Concomitant]
     Route: 048
  24. PURSENNID [Concomitant]
     Route: 048
  25. FOLIAMIN [Concomitant]
     Route: 048
  26. NEUROTROPIN [Concomitant]
     Dosage: 16 UNITS DAILY
     Route: 048
  27. YAKUBAN [Concomitant]
     Indication: RHEUMATOID ARTHRITIS
     Route: 062

REACTIONS (1)
  - HERPES ZOSTER [None]
